FAERS Safety Report 7943940-9 (Version None)
Quarter: 2011Q4

REPORT INFORMATION
  Report Type: 
  Country: None (occurrence: None)
  Receive Date: 20111128
  Receipt Date: 20111118
  Transmission Date: 20120403
  Serious: Yes (Hospitalization)
  Sender: FDA-Public Use
  Company Number: NL-ROCHE-1014341

PATIENT
  Sex: Male

DRUGS (3)
  1. XELODA [Suspect]
     Indication: GASTRIC CANCER
     Route: 048
     Dates: start: 20110929
  2. EPIRUBICIN HYDROCHLORIDE [Suspect]
     Indication: GASTRIC CANCER
     Route: 042
     Dates: start: 20110929
  3. CISPLATIN [Suspect]
     Indication: GASTRIC CANCER
     Route: 042
     Dates: start: 20110929

REACTIONS (1)
  - HYPERVENTILATION [None]
